FAERS Safety Report 4354510-6 (Version None)
Quarter: 2004Q2

REPORT INFORMATION
  Report Type: 
  Country: None (occurrence: None)
  Receive Date: 20040503
  Receipt Date: 20040419
  Transmission Date: 20050107
  Serious: Yes (Hospitalization)
  Sender: FDA-Public Use
  Company Number: S04-USA-02246-01

PATIENT
  Age: 28 Year
  Sex: Female

DRUGS (4)
  1. LEXAPRO [Suspect]
     Indication: DEPRESSION
     Dates: start: 20040417, end: 20040417
  2. LEXAPRO [Suspect]
     Indication: DEPRESSION
  3. FLEXERIL [Suspect]
     Dates: start: 20040417, end: 20040417
  4. FLEXERIL [Suspect]

REACTIONS (9)
  - AGITATION [None]
  - DIZZINESS [None]
  - DYSKINESIA [None]
  - FEELING JITTERY [None]
  - INTENTIONAL OVERDOSE [None]
  - MUSCLE TWITCHING [None]
  - RESTLESSNESS [None]
  - SEROTONIN SYNDROME [None]
  - SUICIDE ATTEMPT [None]
